FAERS Safety Report 8437956-6 (Version None)
Quarter: 2012Q2

REPORT INFORMATION
  Report Type: 
  Country: None (occurrence: None)
  Receive Date: 20120323
  Receipt Date: 20110919
  Transmission Date: 20120825
  Serious: Yes (Hospitalization)
  Sender: FDA-Public Use
  Company Number: 163-21880-11062517

PATIENT
  Age: 52 Year
  Sex: Male

DRUGS (6)
  1. DEXAMETHASONE [Concomitant]
  2. AMLODIPINE [Concomitant]
  3. REVLIMID [Suspect]
     Indication: MULTIPLE MYELOMA
     Dosage: 15 MG, DAILY X 14 DAYS, 7 DAYS OFF, PO
     Route: 048
     Dates: start: 20110601, end: 20110620
  4. REVLIMID [Suspect]
     Indication: MULTIPLE MYELOMA
     Dosage: 15 MG, DAILY X 14 DAYS, 7 DAYS OFF, PO
     Route: 048
     Dates: start: 20110627
  5. REVLIMID [Suspect]
  6. ASPIRIN [Concomitant]

REACTIONS (2)
  - DEEP VEIN THROMBOSIS [None]
  - OEDEMA PERIPHERAL [None]
